FAERS Safety Report 7154224-3 (Version None)
Quarter: 2010Q4

REPORT INFORMATION
  Report Type: 
  Country: None (occurrence: None)
  Receive Date: 20101213
  Receipt Date: 20101204
  Transmission Date: 20110411
  Serious: Yes (Other)
  Sender: FDA-Public Use
  Company Number: US-PFIZER INC-2010164175

PATIENT
  Sex: Female

DRUGS (5)
  1. LYRICA [Suspect]
     Indication: HEADACHE
     Dosage: 50 MG, 1X/DAY
     Route: 048
     Dates: start: 20101101
  2. LYRICA [Suspect]
     Dosage: 50 MG, 3X/DAY
  3. ACIPHEX [Concomitant]
     Indication: IRRITABLE BOWEL SYNDROME
     Dosage: 45 MG, 1X/DAY
  4. LEXAPRO [Concomitant]
     Indication: IRRITABLE BOWEL SYNDROME
     Dosage: 45 MG, 1X/DAY
  5. TOPAMAX [Concomitant]
     Indication: HEADACHE
     Dosage: 45 MG, 1X/DAY

REACTIONS (4)
  - DYSPNOEA [None]
  - GINGIVAL SWELLING [None]
  - LIP SWELLING [None]
  - STOMATITIS [None]
